FAERS Safety Report 7978813-9 (Version None)
Quarter: 2011Q4

REPORT INFORMATION
  Report Type: 
  Country: None (occurrence: None)
  Receive Date: 20111214
  Receipt Date: 20111209
  Transmission Date: 20120403
  Serious: No
  Sender: FDA-Public Use
  Company Number: US-BAYER-2011-119473

PATIENT
  Age: 73 Year
  Sex: Male
  Weight: 95 kg

DRUGS (4)
  1. LISINOPRIL [Concomitant]
  2. LIPITOR [Concomitant]
  3. OMEPRAZOLE [Concomitant]
  4. ALEVE (CAPLET) [Suspect]
     Indication: BACK PAIN
     Dosage: 2 DF, QD
     Route: 048
     Dates: start: 20111111

REACTIONS (1)
  - NO ADVERSE EVENT [None]
